FAERS Safety Report 25670288 (Version 2)
Quarter: 2025Q3

REPORT INFORMATION
  Report Type: Spontaneous
  Country: US (occurrence: US)
  Receive Date: 20250812
  Receipt Date: 20250912
  Transmission Date: 20251020
  Serious: Yes (Other)
  Sender: GILEAD
  Company Number: US-GILEAD-2025-0723195

PATIENT
  Age: 73 Year
  Sex: Female
  Weight: 78.005 kg

DRUGS (16)
  1. LETAIRIS [Suspect]
     Active Substance: AMBRISENTAN
     Indication: Pulmonary arterial hypertension
     Route: 055
  2. TYVASO [Suspect]
     Active Substance: TREPROSTINIL
     Indication: Pulmonary arterial hypertension
     Dosage: 90 UG, QID
     Route: 055
     Dates: start: 20250802
  3. CYANOCOBALAMIN [Concomitant]
     Active Substance: CYANOCOBALAMIN
  4. LASIX [Concomitant]
     Active Substance: FUROSEMIDE
  5. SILDENAFIL CITRATE [Concomitant]
     Active Substance: SILDENAFIL CITRATE
  6. COLCHICINE [Concomitant]
     Active Substance: COLCHICINE
  7. SPIRONOLACTONE [Concomitant]
     Active Substance: SPIRONOLACTONE
  8. METFORMIN HYDROCHLORIDE [Concomitant]
     Active Substance: METFORMIN HYDROCHLORIDE
  9. CETIRIZINE HYDROCHLORIDE [Concomitant]
     Active Substance: CETIRIZINE HYDROCHLORIDE
  10. ASPIRIN [Concomitant]
     Active Substance: ASPIRIN
  11. AVASTIN [Concomitant]
     Active Substance: BEVACIZUMAB
  12. VITAMIN B COMPLEX NOS [Concomitant]
     Active Substance: CYANOCOBALAMIN\PYRIDOXINE HYDROCHLORIDE\RIBOFLAVIN\SODIUM PANTOTHENATE\THIAMINE HYDROCHLORIDE\VITAMI
  13. CENTRUM SILVER [ASCORBIC ACID;BETACAROTENE;BIOTIN;CALCIUM PHOSPHATE;CH [Concomitant]
  14. CLONIDINE HYDROCHLORIDE [Concomitant]
     Active Substance: CLONIDINE HYDROCHLORIDE
  15. VITAMIN B12 [Concomitant]
     Active Substance: CYANOCOBALAMIN
  16. DIETARY SUPPLEMENT [Concomitant]
     Active Substance: DIETARY SUPPLEMENT

REACTIONS (10)
  - Renal failure [Unknown]
  - Skin burning sensation [Unknown]
  - Mean arterial pressure increased [Unknown]
  - Fatigue [Unknown]
  - Exposure to toxic agent [Unknown]
  - Alopecia [Unknown]
  - Tooth loss [Unknown]
  - Nervous system disorder [Unknown]
  - Erythema [Unknown]
  - Oedema [Unknown]

NARRATIVE: CASE EVENT DATE: 20250208
